FAERS Safety Report 8249360-4 (Version None)
Quarter: 2012Q2

REPORT INFORMATION
  Report Type: 
  Country: None (occurrence: None)
  Receive Date: 20120402
  Receipt Date: 20120326
  Transmission Date: 20120825
  Serious: Yes (Hospitalization)
  Sender: FDA-Public Use
  Company Number: US-AMGEN-USASP2011059881

PATIENT
  Age: 65 Year
  Sex: Female
  Weight: 50.34 kg

DRUGS (1)
  1. ENBREL [Suspect]
     Indication: RHEUMATOID ARTHRITIS
     Dosage: 50 MG, QWK
     Route: 058
     Dates: start: 19990619

REACTIONS (4)
  - PAIN [None]
  - ADENOCARCINOMA PANCREAS [None]
  - CHOLELITHIASIS [None]
  - INJECTION SITE HAEMATOMA [None]
